FAERS Safety Report 12662889 (Version 2)
Quarter: 2016Q3

REPORT INFORMATION
  Report Type: Spontaneous
  Country: GB (occurrence: GB)
  Receive Date: 20160818
  Receipt Date: 20160830
  Transmission Date: 20161109
  Serious: Yes (Life-Threatening, Hospitalization, Other)
  Sender: FDA-Public Use
  Company Number: GB-009507513-1009GBR00110

PATIENT
  Age: 56 Year
  Sex: Male

DRUGS (10)
  1. EZETIMIBE. [Suspect]
     Active Substance: EZETIMIBE
     Indication: PRODUCT USED FOR UNKNOWN INDICATION
     Dosage: 10 MG, UNK
     Route: 048
     Dates: end: 2010
  2. RANITIDINE. [Interacting]
     Active Substance: RANITIDINE
     Indication: CEREBROVASCULAR ACCIDENT PROPHYLAXIS
     Dosage: 150 MG, BID
     Route: 065
     Dates: end: 2010
  3. TROLNITRATE PHOSPHATE [Concomitant]
  4. PERINDOPRIL [Interacting]
     Active Substance: PERINDOPRIL
     Indication: CEREBROVASCULAR ACCIDENT PROPHYLAXIS
     Dosage: 4 MG, UNKNOWN
     Route: 065
     Dates: end: 2010
  5. GLYCOR [Concomitant]
  6. ATORVASTATIN [Interacting]
     Active Substance: ATORVASTATIN
     Indication: CEREBROVASCULAR ACCIDENT PROPHYLAXIS
     Dosage: 20 MG, UNKNOWN
     Route: 065
     Dates: end: 2010
  7. NITROGLYCERIN. [Concomitant]
     Active Substance: NITROGLYCERIN
     Dosage: 2 DF, UNK
     Route: 060
  8. INDAPAMIDE. [Interacting]
     Active Substance: INDAPAMIDE
     Indication: CEREBROVASCULAR ACCIDENT PROPHYLAXIS
     Dosage: 3 MG, UNKNOWN
     Route: 065
     Dates: end: 2010
  9. ASPIRIN. [Concomitant]
     Active Substance: ASPIRIN
     Indication: PRODUCT USED FOR UNKNOWN INDICATION
     Dosage: 75 MG, UNK
     Route: 048
  10. GLUCOSAMINE [Concomitant]
     Active Substance: GLUCOSAMINE
     Indication: PRODUCT USED FOR UNKNOWN INDICATION
     Dosage: 100 MG, UNK
     Route: 048

REACTIONS (3)
  - Hypotension [Recovered/Resolved]
  - Stevens-Johnson syndrome [Recovered/Resolved]
  - Drug interaction [Recovered/Resolved]

NARRATIVE: CASE EVENT DATE: 20100607
